FAERS Safety Report 4617693-6 (Version None)
Quarter: 2005Q1

REPORT INFORMATION
  Report Type: 
  Country: None (occurrence: None)
  Receive Date: 20050322
  Receipt Date: 20040824
  Transmission Date: 20050727
  Serious: Yes (Hospitalization)
  Sender: FDA-Public Use
  Company Number: 8742

PATIENT
  Age: 46 Year
  Sex: Female

DRUGS (3)
  1. METHOTREXATE [Suspect]
     Indication: DERMATOMYOSITIS
     Dosage: 35 MG WEEKLY PO
     Route: 048
  2. PREDNISONE TAB [Concomitant]
  3. MYCOPHENOLATE MOFETIL [Concomitant]

REACTIONS (7)
  - B-CELL LYMPHOMA [None]
  - BRAIN OEDEMA [None]
  - DRUG ERUPTION [None]
  - EPSTEIN-BARR VIRUS INFECTION [None]
  - FACIAL PALSY [None]
  - PARESIS [None]
  - RASH MORBILLIFORM [None]
